FAERS Safety Report 16227084 (Version 3)
Quarter: 2019Q3

REPORT INFORMATION
  Report Type: Spontaneous
  Country: US (occurrence: US)
  Receive Date: 20190423
  Receipt Date: 20190708
  Transmission Date: 20191004
  Serious: Yes (Other)
  Sender: FDA-Public Use
  Company Number: US-ASTRAZENECA-2019SE59237

PATIENT
  Sex: Male

DRUGS (16)
  1. KOMBIGLYZE XR [Suspect]
     Active Substance: METFORMIN HYDROCHLORIDE\SAXAGLIPTIN HYDROCHLORIDE
     Indication: TYPE 2 DIABETES MELLITUS
     Dosage: 2.5-1000 MG 2 TABLETS BY MOUTH DAILY
     Route: 048
     Dates: start: 20150731
  2. KOMBIGLYZE XR [Suspect]
     Active Substance: METFORMIN HYDROCHLORIDE\SAXAGLIPTIN HYDROCHLORIDE
     Indication: TYPE 2 DIABETES MELLITUS
     Dosage: 2.5-1000 MG 2 TABLETS BY MOUTH DAILY
     Route: 048
     Dates: start: 20150706
  3. ATORVASTATIN [Concomitant]
     Active Substance: ATORVASTATIN
  4. CARVEDILOL. [Concomitant]
     Active Substance: CARVEDILOL
  5. NIFEDICAL XL [Concomitant]
     Active Substance: NIFEDIPINE
  6. CLONIDINE HYDROCHLORIDE. [Concomitant]
     Active Substance: CLONIDINE HYDROCHLORIDE
  7. KOMBIGLYZE XR [Suspect]
     Active Substance: METFORMIN HYDROCHLORIDE\SAXAGLIPTIN HYDROCHLORIDE
     Indication: TYPE 2 DIABETES MELLITUS
     Dosage: 2.5-1000 MG 2 TABLETS BY MOUTH DAILY
     Route: 048
     Dates: start: 20150227
  8. NYSTATIN. [Concomitant]
     Active Substance: NYSTATIN
  9. SPIRONOLACTONE. [Concomitant]
     Active Substance: SPIRONOLACTONE
  10. FELODIPINE. [Concomitant]
     Active Substance: FELODIPINE
  11. LASIX [Concomitant]
     Active Substance: FUROSEMIDE
  12. KOMBIGLYZE XR [Suspect]
     Active Substance: METFORMIN HYDROCHLORIDE\SAXAGLIPTIN HYDROCHLORIDE
     Indication: TYPE 2 DIABETES MELLITUS
     Dosage: 2.5-1000 MG 2 TABLETS BY MOUTH DAILY
     Route: 048
     Dates: start: 20131101, end: 20151121
  13. TAMSULOSIN [Concomitant]
     Active Substance: TAMSULOSIN
  14. LOSARTAN. [Concomitant]
     Active Substance: LOSARTAN
  15. KOMBIGLYZE XR [Suspect]
     Active Substance: METFORMIN HYDROCHLORIDE\SAXAGLIPTIN HYDROCHLORIDE
     Indication: TYPE 2 DIABETES MELLITUS
     Route: 048
     Dates: start: 20131101, end: 20170827
  16. FUROSEMIDE. [Concomitant]
     Active Substance: FUROSEMIDE

REACTIONS (4)
  - Cardiac failure congestive [Unknown]
  - Acute left ventricular failure [Unknown]
  - Chronic left ventricular failure [Unknown]
  - Cardiac failure [Unknown]
